FAERS Safety Report 24182715 (Version 1)
Quarter: 2024Q3

REPORT INFORMATION
  Report Type: Report from Study
  Country: CA (occurrence: CA)
  Receive Date: 20240807
  Receipt Date: 20240807
  Transmission Date: 20241017
  Serious: Yes (Death)
  Sender: AMARIN
  Company Number: CA-Amarin Pharma  Inc-2024AMR000390

PATIENT
  Age: 65 Year
  Sex: Female

DRUGS (1)
  1. VASCEPA [Suspect]
     Active Substance: ICOSAPENT ETHYL
     Indication: Product used for unknown indication
     Dosage: UNKNOWN
     Dates: start: 20231003

REACTIONS (1)
  - Death [Fatal]
